FAERS Safety Report 5327062-1 (Version None)
Quarter: 2007Q2

REPORT INFORMATION
  Report Type: 
  Country: None (occurrence: None)
  Receive Date: 20070517
  Receipt Date: 20070511
  Transmission Date: 20071010
  Serious: Yes (Death)
  Sender: FDA-Public Use
  Company Number: PHHO2007JP08161

PATIENT
  Age: 85 Year
  Sex: Female
  Weight: 60 kg

DRUGS (13)
  1. LOCHOL [Suspect]
     Indication: HYPERCHOLESTEROLAEMIA
     Dosage: 20 MG, QD
     Route: 048
     Dates: start: 20020308
  2. AMOBAN [Concomitant]
  3. APLACE [Concomitant]
  4. GASLON [Concomitant]
  5. GASMOTIN [Concomitant]
  6. MAGNESIUM OXIDE [Concomitant]
  7. DIOVAN [Concomitant]
  8. FLUITRAN [Concomitant]
  9. NORVASC [Concomitant]
  10. ALDACTONE [Concomitant]
  11. GASTER [Concomitant]
  12. DEPAS [Concomitant]
  13. NU-LOTAN [Concomitant]

REACTIONS (7)
  - ABDOMINAL PAIN [None]
  - CONSTIPATION [None]
  - GASTROENTERITIS [None]
  - INTESTINAL OBSTRUCTION [None]
  - NAUSEA [None]
  - SEPTIC SHOCK [None]
  - VOMITING [None]
